FAERS Safety Report 9097065 (Version 1)
Quarter: 2013Q1

REPORT INFORMATION
  Report Type: Spontaneous
  Country: DK (occurrence: None)
  Receive Date: 20130123
  Receipt Date: 20130123
  Transmission Date: 20140127
  Serious: Yes (Other)
  Sender: FDA-Public Use
  Company Number: 2013MA000541

PATIENT
  Age: 75 Year
  Sex: Female

DRUGS (3)
  1. METFORMIN HYDROCHLORIDE EXTENDED-RELEASE TABLETS, 750 MG (PUREPAC) (METFORMIN HYDROCHLORIDE) [Suspect]
     Indication: DIABETES MELLITUS
     Route: 048
     Dates: start: 20101209, end: 20121209
  2. TACHIPIRINA [Concomitant]
  3. ANTRA [Concomitant]

REACTIONS (5)
  - Syncope [None]
  - Urinary incontinence [None]
  - Loss of consciousness [None]
  - Hyperhidrosis [None]
  - Drug ineffective [None]
